FAERS Safety Report 13243431 (Version 1)
Quarter: 2017Q1

REPORT INFORMATION
  Report Type: Spontaneous
  Country: NO (occurrence: NO)
  Receive Date: 20170217
  Receipt Date: 20170217
  Transmission Date: 20170428
  Serious: Yes (Hospitalization, Other)
  Sender: FDA-Public Use
  Company Number: PHHY2017NO020875

PATIENT
  Age: 60 Year
  Sex: Male

DRUGS (7)
  1. LAMICTAL [Suspect]
     Active Substance: LAMOTRIGINE
     Dosage: 175 MG, QD (IN THE MORNING)
     Route: 065
  2. LAMICTAL [Suspect]
     Active Substance: LAMOTRIGINE
     Indication: EPILEPSY
     Dosage: 25 MG, UNK
     Route: 048
     Dates: start: 20030909, end: 201410
  3. LAMICTAL [Suspect]
     Active Substance: LAMOTRIGINE
     Dosage: 50 MG, BID
     Route: 065
  4. TEGRETOL [Suspect]
     Active Substance: CARBAMAZEPINE
     Indication: PRODUCT USED FOR UNKNOWN INDICATION
     Route: 065
  5. LAMICTAL [Suspect]
     Active Substance: LAMOTRIGINE
     Dosage: (75 MG MORNING AND 50 MG EVENING), BID
     Route: 065
     Dates: start: 2009
  6. LAMICTAL [Suspect]
     Active Substance: LAMOTRIGINE
     Dosage: 125 MG, QD
     Route: 065
     Dates: start: 20080216
  7. LAMICTAL [Suspect]
     Active Substance: LAMOTRIGINE
     Dosage: 150 MG, QD (IN THE MORNING)
     Route: 065
     Dates: start: 20140319

REACTIONS (34)
  - Loss of consciousness [Unknown]
  - Hand fracture [Unknown]
  - Somnambulism [Unknown]
  - Stress [Unknown]
  - Sleep disorder [Recovered/Resolved]
  - Depression [Recovered/Resolved]
  - Seizure [Unknown]
  - Mental disorder [Unknown]
  - Epilepsy [Unknown]
  - Thermal burn [Unknown]
  - Aggression [Recovered/Resolved]
  - Confusional state [Unknown]
  - Rib fracture [Unknown]
  - Intervertebral disc protrusion [Unknown]
  - Terminal insomnia [Unknown]
  - Suicidal ideation [Recovered/Resolved]
  - Headache [Unknown]
  - Anxiety [Recovered/Resolved]
  - Insomnia [Unknown]
  - Disturbance in attention [Unknown]
  - Amnesia [Unknown]
  - Visual impairment [Unknown]
  - Nasal obstruction [Unknown]
  - Cognitive disorder [Unknown]
  - Restlessness [Unknown]
  - Headache [Recovered/Resolved]
  - Road traffic accident [Unknown]
  - Antisocial behaviour [Unknown]
  - Irritability [Unknown]
  - Memory impairment [Unknown]
  - Condition aggravated [Unknown]
  - Fall [Unknown]
  - Poor quality sleep [Unknown]
  - Intentional product misuse [Unknown]

NARRATIVE: CASE EVENT DATE: 2003
